FAERS Safety Report 7985785-X (Version None)
Quarter: 2011Q4

REPORT INFORMATION
  Report Type: 
  Country: None (occurrence: None)
  Receive Date: 20111214
  Receipt Date: 20111130
  Transmission Date: 20120403
  Serious: Yes (Death, Life-Threatening, Hospitalization, Other)
  Sender: FDA-Public Use
  Company Number: 2011MA015509

PATIENT
  Age: 83 Year
  Sex: Female
  Weight: 67.586 kg

DRUGS (97)
  1. DIGOXIN [Suspect]
     Indication: SUPRAVENTRICULAR TACHYARRHYTHMIA
     Dosage: 0.5 MG LOADING DOSE;X1;IV
     Route: 042
  2. DIGOXIN [Suspect]
     Indication: ATRIAL FIBRILLATION
     Dosage: 0.5 MG LOADING DOSE;X1;IV
     Route: 042
  3. NABUMETONE (CON.) [Concomitant]
  4. SINGULAIR (CON.) [Concomitant]
  5. ANTIHISTAMINE (CON.) [Concomitant]
  6. MILK OF MAGNESIA (CON.) [Concomitant]
  7. PERCOSET 5 (CON.) [Concomitant]
  8. GLAUCOMA EYE DROPS (CON.) [Concomitant]
  9. COLACE (CON.) [Concomitant]
  10. LABETALOL (CON.) [Concomitant]
  11. NITROGLYCERIN (CON.) [Concomitant]
  12. QUININE SULFATE (CON.) [Concomitant]
  13. DEXAMETHASONE (CON.) [Concomitant]
  14. AMOXICILLIN (CON.) [Concomitant]
  15. ANTI-COAGULANT (CON.) [Concomitant]
  16. LEVOFLOXACIN (CON.) [Concomitant]
  17. XANAX (CON.) [Concomitant]
  18. DESYREL (CON.) [Concomitant]
  19. DARVOCET (CON.) [Concomitant]
  20. FLU VACCINE (CON.) [Concomitant]
  21. AVELOX (CON.) [Concomitant]
  22. LYRICA (CON.) [Concomitant]
  23. ENABLEX (CON.) [Concomitant]
  24. LIDOCAINE (CON.) [Concomitant]
  25. CEFTRIAXONE (CON.) [Concomitant]
  26. CYMBALTA (CON.) [Concomitant]
  27. ZOLOFT (CON.) [Concomitant]
  28. LEVAQUIN (CON.) [Concomitant]
  29. CARAFATE (CON.) [Concomitant]
  30. TIMOPTIC (CON.) [Concomitant]
  31. DEMEROL (CON.) [Concomitant]
  32. VIOXX (CON.) [Concomitant]
  33. AUGMENTIN (CON.) [Concomitant]
  34. CHROMAGEN (CON.) [Concomitant]
  35. DURAPHEN (CON.) [Concomitant]
  36. FLUCONAZOLE (CON.) [Concomitant]
  37. PROTONIX (CON.) [Concomitant]
  38. PEPCID (CON.) [Concomitant]
  39. MIACALCIN (CON.) [Concomitant]
  40. BACITRACIN OINTMENT (CON.) [Concomitant]
  41. ALLEGRA (CON.) [Concomitant]
  42. CALCIUM (CON.) [Concomitant]
  43. ZANTAC (CON.) [Concomitant]
  44. SULINDAC (CON.) [Concomitant]
  45. VESICARE (CON.) [Concomitant]
  46. AZITHROMYCIN (CON.) [Concomitant]
  47. TRAVOPROST (CON.) [Concomitant]
  48. INDERAL (CON.) [Concomitant]
  49. PERCOCET 10 (CON.) [Concomitant]
  50. PREVACID (CON.) [Concomitant]
  51. LIBRAX (CON.) [Concomitant]
  52. DIGIBIND (CON.) [Concomitant]
  53. ANTIBIOTIC THERAPY (CON.) [Concomitant]
  54. PREMARIN (CON.) [Concomitant]
  55. BENTYL (CON.) [Concomitant]
  56. CLARITIN (CON.) [Concomitant]
  57. VOLTAREN (CON.) [Concomitant]
  58. NEXIUM (CON.) [Concomitant]
  59. ZYRTEC (CON.) [Concomitant]
  60. ATROVENT (CON.) [Concomitant]
  61. NEURONTIN (CON.) [Concomitant]
  62. ALPRAZOLAM (CON.) [Concomitant]
  63. IBUPROFEN (CON.) [Concomitant]
  64. CARBIDOPA (CON.) [Concomitant]
  65. LEVADOPA (CON.) [Concomitant]
  66. ALPHAGEN EYE DROPS (CON.) [Concomitant]
  67. ADVAIR (CON.) [Concomitant]
  68. CEFTIN (CON.) [Concomitant]
  69. PANTOPRAZOLE (CON.) [Concomitant]
  70. DETROL LA (CON.) [Concomitant]
  71. METAMUCIL (CON.) [Concomitant]
  72. MYCOSTATIN CREAM (CON.) [Concomitant]
  73. TRAVATAN (CON.) [Concomitant]
  74. VITAMIN E (CON.) [Concomitant]
  75. OSCAL (CON.) [Concomitant]
  76. REQUIP (CON.) [Concomitant]
  77. NIFEREX (CON.) [Concomitant]
  78. DITROPAN (CON.) [Concomitant]
  79. RELAFEN (CON.) [Concomitant]
  80. REGLAN (CON.) [Concomitant]
  81. LORCET PLUS (CON.) [Concomitant]
  82. NORVASC (CON.) [Concomitant]
  83. CELEBREX (CON.) [Concomitant]
  84. DIGIBYN (CON.) [Concomitant]
  85. DETROL (CON.) [Concomitant]
  86. EYE DROPS (CON.) [Concomitant]
  87. TEQUIN (CON.) [Concomitant]
  88. DELSYM (CON.) [Concomitant]
  89. KEFLEX (CON.) [Concomitant]
  90. DURAGESIC (CON.) [Concomitant]
  91. RHINOCORT (CON.) [Concomitant]
  92. BIAXIN (CON.) [Concomitant]
  93. COUGH SYRUP (CON.) [Concomitant]
  94. ROCEPHIN (CON.) [Concomitant]
  95. TRIAMCINOLONE (CON.) [Concomitant]
  96. KENALOG (CON.) [Concomitant]
  97. DIGIBYN (CON.) [Concomitant]

REACTIONS (83)
  - OESOPHAGITIS [None]
  - GLAUCOMA [None]
  - EXCORIATION [None]
  - UPPER RESPIRATORY TRACT INFECTION [None]
  - SINUS TACHYCARDIA [None]
  - PULMONARY HYPERTENSION [None]
  - URINARY TRACT INFECTION [None]
  - HYPERTENSION [None]
  - MANIA [None]
  - DYSPHAGIA [None]
  - WOUND INFECTION STAPHYLOCOCCAL [None]
  - BLADDER IRRITATION [None]
  - COMPRESSION FRACTURE [None]
  - SINUSITIS [None]
  - ANAEMIA [None]
  - BURN INFECTION [None]
  - FUNGAL INFECTION [None]
  - CONJUNCTIVITIS ALLERGIC [None]
  - PAIN [None]
  - BRADYCARDIA [None]
  - MYALGIA [None]
  - DEPRESSION [None]
  - WEIGHT DECREASED [None]
  - INTERVERTEBRAL DISC DEGENERATION [None]
  - MUSCLE SPASMS [None]
  - RECTAL HAEMORRHAGE [None]
  - MITRAL VALVE PROLAPSE [None]
  - DIARRHOEA [None]
  - DISORIENTATION [None]
  - CARDIAC FAILURE [None]
  - STRESS URINARY INCONTINENCE [None]
  - ARTHRALGIA [None]
  - IMPAIRED HEALING [None]
  - CATARACT [None]
  - TACHYARRHYTHMIA [None]
  - SUPRAVENTRICULAR TACHYCARDIA [None]
  - TRICUSPID VALVE INCOMPETENCE [None]
  - GASTROOESOPHAGEAL REFLUX DISEASE [None]
  - NODAL RHYTHM [None]
  - METABOLIC ACIDOSIS [None]
  - CARDIO-RESPIRATORY ARREST [None]
  - BACK PAIN [None]
  - FALL [None]
  - STASIS DERMATITIS [None]
  - RASH [None]
  - DIVERTICULUM [None]
  - HYPOTENSION [None]
  - PERICARDIAL EFFUSION [None]
  - DEHYDRATION [None]
  - OSTEOARTHRITIS [None]
  - BLOOD TRIGLYCERIDES [None]
  - HIATUS HERNIA [None]
  - OSTEOPOROSIS [None]
  - DRUG INEFFECTIVE [None]
  - TOOTH LOSS [None]
  - PERIODONTAL DISEASE [None]
  - MITRAL VALVE INCOMPETENCE [None]
  - BRONCHITIS [None]
  - SEPSIS [None]
  - BLOOD CHOLESTEROL INCREASED [None]
  - COORDINATION ABNORMAL [None]
  - RENAL TUBULAR NECROSIS [None]
  - HYPOVOLAEMIA [None]
  - HAEMORRHAGE [None]
  - PEPTIC ULCER [None]
  - SKIN LESION [None]
  - DYSPHONIA [None]
  - ARTHRITIS [None]
  - ANXIETY [None]
  - GENERAL PHYSICAL HEALTH DETERIORATION [None]
  - TOXICITY TO VARIOUS AGENTS [None]
  - ATRIAL FIBRILLATION [None]
  - CONFUSIONAL STATE [None]
  - RENAL FAILURE ACUTE [None]
  - ATRIOVENTRICULAR BLOCK [None]
  - URINARY INCONTINENCE [None]
  - PATHOLOGICAL FRACTURE [None]
  - RIB FRACTURE [None]
  - RHINITIS ALLERGIC [None]
  - CELLULITIS [None]
  - HYPERHIDROSIS [None]
  - PAIN IN EXTREMITY [None]
  - CONSTIPATION [None]
